FAERS Safety Report 9632479 (Version 3)
Quarter: 2013Q4

REPORT INFORMATION
  Report Type: Report from Study
  Country: US (occurrence: US)
  Receive Date: 20131018
  Receipt Date: 20131025
  Transmission Date: 20140711
  Serious: Yes (Other)
  Sender: FDA-Public Use
  Company Number: US-BAXTER-2012BAX015110

PATIENT
  Age: 34 Year
  Sex: Male
  Weight: 108.96 kg

DRUGS (11)
  1. GAMMAGARD S/D [Suspect]
     Indication: IMMUNODEFICIENCY COMMON VARIABLE
     Route: 042
     Dates: start: 2011, end: 20120411
  2. GAMMAGARD S/D [Suspect]
     Route: 042
     Dates: start: 201212
  3. PREDNISONE [Concomitant]
     Indication: PREMEDICATION
     Route: 048
     Dates: start: 201212, end: 201212
  4. PREDNISONE [Concomitant]
     Route: 048
     Dates: start: 201301, end: 201301
  5. PREDNISONE [Concomitant]
     Route: 048
     Dates: start: 201302, end: 201302
  6. PREDNISONE [Concomitant]
     Route: 048
     Dates: start: 20130801, end: 20130801
  7. PREDNISONE [Concomitant]
     Route: 048
     Dates: start: 20130829
  8. GAMMAPLEX [Concomitant]
     Indication: IMMUNODEFICIENCY COMMON VARIABLE
     Route: 042
  9. HIZENTRA [Concomitant]
     Indication: IMMUNODEFICIENCY COMMON VARIABLE
  10. ALBUTEROL MDI [Concomitant]
     Indication: ASTHMA
  11. ALLEGRA [Concomitant]
     Indication: RHINITIS ALLERGIC
     Route: 048

REACTIONS (13)
  - Chest pain [Recovered/Resolved]
  - Flushing [Recovered/Resolved]
  - Tachycardia [Recovered/Resolved]
  - Pruritus [Recovered/Resolved]
  - Blood pressure increased [Recovered/Resolved]
  - Dizziness [Unknown]
  - Palpitations [Unknown]
  - Anxiety [Unknown]
  - Infusion related reaction [Unknown]
  - Hyperhidrosis [Unknown]
  - Malaise [Unknown]
  - Asthenia [Unknown]
  - Chest discomfort [Recovered/Resolved]
